FAERS Safety Report 18300386 (Version 1)
Quarter: 2020Q3

REPORT INFORMATION
  Report Type: Spontaneous
  Country: US (occurrence: US)
  Receive Date: 20200922
  Receipt Date: 20200922
  Transmission Date: 20201103
  Serious: Yes (Other)
  Sender: FDA-Public Use
  Company Number: None

PATIENT
  Age: 39 Year
  Sex: Female
  Weight: 74.25 kg

DRUGS (6)
  1. BETOPTIC?S [Concomitant]
     Active Substance: BETAXOLOL HYDROCHLORIDE
  2. LOTEMAX [Concomitant]
     Active Substance: LOTEPREDNOL ETABONATE
  3. BRIMONIDINE [Concomitant]
     Active Substance: BRIMONIDINE TARTRATE
  4. NATURE?THROID [Suspect]
     Active Substance: THYROID, PORCINE
     Indication: AUTOIMMUNE THYROIDITIS
     Dosage: ?          QUANTITY:3 TABLET(S);?
     Route: 048
     Dates: start: 20200108, end: 20200813
  5. LATANOPROST. [Concomitant]
     Active Substance: LATANOPROST
  6. ARMOUR THYROID [Concomitant]
     Active Substance: THYROID, PORCINE

REACTIONS (4)
  - Blood thyroid stimulating hormone increased [None]
  - Recalled product administered [None]
  - Malaise [None]
  - Hypothyroidism [None]

NARRATIVE: CASE EVENT DATE: 20200803
